FAERS Safety Report 23092688 (Version 1)
Quarter: 2023Q4

REPORT INFORMATION
  Report Type: Spontaneous
  Country: FR (occurrence: FR)
  Receive Date: 20231021
  Receipt Date: 20231021
  Transmission Date: 20240110
  Serious: Yes (Hospitalization)
  Sender: FDA-Public Use
  Company Number: None

PATIENT
  Age: 34 Year
  Sex: Male

DRUGS (13)
  1. CIPROFLOXACIN [Interacting]
     Active Substance: CIPROFLOXACIN
     Indication: Prostatitis
     Dates: start: 20230902, end: 20230914
  2. CYAMEMAZINE [Interacting]
     Active Substance: CYAMEMAZINE
     Indication: Bipolar I disorder
     Dates: end: 20230914
  3. BACLOFEN [Interacting]
     Active Substance: BACLOFEN
     Indication: Muscle spasticity
     Dates: end: 20230914
  4. KETAMIN [Interacting]
     Active Substance: KETAMINE
     Indication: Multiple sclerosis relapse
     Dosage: NOT SPECIFIED
     Dates: start: 20230902, end: 20230905
  5. DEPAKOTE [Interacting]
     Active Substance: DIVALPROEX SODIUM
     Indication: Bipolar I disorder
     Dosage: DEPAKOTE 500 MG, GASTRO-RESISTANT TABLET
     Dates: end: 20230914
  6. ACETAMINOPHEN\BELLADONNA LEAF\CAFFEINE\OPIUM [Interacting]
     Active Substance: ACETAMINOPHEN\BELLADONNA LEAF\CAFFEINE\OPIUM
     Indication: Neuralgia
     Dosage: NOT SPECIFIED
     Dates: end: 20230914
  7. TRIMEPRAZINE [Interacting]
     Active Substance: TRIMEPRAZINE
     Indication: Insomnia
     Dosage: THERALENE 4 PER CENT, ORAL SOLUTION IN DROPS
     Dates: end: 20230914
  8. EFFEXOR [Interacting]
     Active Substance: VENLAFAXINE HYDROCHLORIDE
     Indication: Neuralgia
     Dosage: EFFEXOR L.P. 150 MG, PROLONGED RELEASE CAPSULE
     Dates: end: 20230914
  9. RIVOTRIL [Interacting]
     Active Substance: CLONAZEPAM
     Indication: Neuralgia
     Dosage: RIVOTRIL 2.5 MG/ML, ORAL DROP SOLUTION
     Dates: end: 20230914
  10. OXYCODONE HYDROCHLORIDE [Interacting]
     Active Substance: OXYCODONE HYDROCHLORIDE
     Indication: Neuralgia
     Dosage: OXYNORMORO 10 MG, ORODISPERSIBLE TABLET
     Dates: end: 20230914
  11. VESICARE [Interacting]
     Active Substance: SOLIFENACIN SUCCINATE
     Indication: Pollakiuria
     Dosage: VESICARE 5 MG, FILM-COATED TABLET
     Dates: end: 20230914
  12. AMITRIPTYLINE HYDROCHLORIDE [Interacting]
     Active Substance: AMITRIPTYLINE HYDROCHLORIDE
     Indication: Bipolar I disorder
     Dates: end: 20230914
  13. OXYCONTIN [Interacting]
     Active Substance: OXYCODONE HYDROCHLORIDE
     Indication: Neuralgia
     Dosage: OXYCONTIN LP 40 MG, FILM-COATED PROLONGED RELEASE TABLET
     Dates: end: 20230914

REACTIONS (12)
  - Hypertonia [Recovered/Resolved]
  - Myoclonus [Recovered/Resolved]
  - Hypertension [Recovered/Resolved]
  - Sputum increased [Recovered/Resolved]
  - Vomiting [Recovered/Resolved]
  - Tachycardia [Recovered/Resolved]
  - Psychomotor hyperactivity [Recovered/Resolved]
  - Somnolence [Recovered/Resolved]
  - Confusional state [Recovered/Resolved]
  - Hyperhidrosis [Recovered/Resolved]
  - Dyspnoea [Recovered/Resolved]
  - Drug interaction [Unknown]

NARRATIVE: CASE EVENT DATE: 20230914
